FAERS Safety Report 5903147-3 (Version None)
Quarter: 2008Q3

REPORT INFORMATION
  Report Type: 
  Country: None (occurrence: None)
  Receive Date: 20080929
  Receipt Date: 20080929
  Transmission Date: 20090109
  Serious: Yes (Disabling)
  Sender: FDA-Public Use
  Company Number: None

PATIENT
  Age: 69 Month
  Sex: Female
  Weight: 82.5547 kg

DRUGS (12)
  1. CRESTOR [Suspect]
     Indication: HYPERLIPIDAEMIA
     Dosage: 5 MG
     Dates: start: 20070705, end: 20070911
  2. LISINOPRIL [Concomitant]
  3. HYDROCHLOROTHIAZIDE [Concomitant]
  4. ASPIRIN [Concomitant]
  5. FLOVENT [Concomitant]
  6. ALBUTERO [Concomitant]
  7. TOPROL-XL [Concomitant]
  8. NITROGLYCERIN [Concomitant]
  9. FISH OIL [Concomitant]
  10. CALCIUM [Concomitant]
  11. VIT C [Concomitant]
  12. DOCUSATE [Concomitant]

REACTIONS (1)
  - MYALGIA [None]
